FAERS Safety Report 7025160-8 (Version None)
Quarter: 2010Q4

REPORT INFORMATION
  Report Type: 
  Country: None (occurrence: None)
  Receive Date: 20101001
  Receipt Date: 20100916
  Transmission Date: 20110411
  Serious: Yes (Other)
  Sender: FDA-Public Use
  Company Number: MY-GENENTECH-307267

PATIENT
  Age: 35 Year
  Sex: Female
  Weight: 53.5 kg

DRUGS (4)
  1. METALYSE [Suspect]
     Indication: PULMONARY EMBOLISM
     Dosage: 30 MG, SINGLE
     Route: 042
  2. ENOXAPARIN SODIUM [Suspect]
     Indication: PULMONARY EMBOLISM
     Dosage: 60 MG, SINGLE
     Route: 058
  3. CRYSTALLOID NOS [Concomitant]
     Indication: RESUSCITATION
  4. DOPAMINE [Concomitant]
     Indication: RESUSCITATION
     Dosage: 5 UNK, UNK

REACTIONS (2)
  - OFF LABEL USE [None]
  - POSTPARTUM HAEMORRHAGE [None]
